FAERS Safety Report 6787477-1 (Version None)
Quarter: 2010Q2

REPORT INFORMATION
  Report Type: 
  Country: None (occurrence: None)
  Receive Date: 20100623
  Receipt Date: 20100614
  Transmission Date: 20101027
  Serious: Yes (Death)
  Sender: FDA-Public Use
  Company Number: JP-ROCHE-707377

PATIENT
  Sex: Male

DRUGS (4)
  1. PEGASYS [Suspect]
     Dosage: DOSE REGIMEN: 1 ACTION TAKEN: DOSE DECREASED
     Route: 058
     Dates: start: 20091028, end: 20100428
  2. PEGASYS [Suspect]
     Dosage: 90MCG
     Route: 058
     Dates: start: 20100506, end: 20100506
  3. COPEGUS [Suspect]
     Dosage: ACTION TAKEN: DOSE DECREASED
     Route: 048
     Dates: start: 20091028, end: 20100202
  4. COPEGUS [Suspect]
     Route: 048
     Dates: start: 20100203, end: 20100511

REACTIONS (4)
  - GASTRITIS [None]
  - INSOMNIA [None]
  - MULTI-ORGAN FAILURE [None]
  - THROMBOTIC THROMBOCYTOPENIC PURPURA [None]
